FAERS Safety Report 24316765 (Version 1)
Quarter: 2024Q3

REPORT INFORMATION
  Report Type: Spontaneous
  Country: RO (occurrence: RO)
  Receive Date: 20240913
  Receipt Date: 20240913
  Transmission Date: 20241016
  Serious: Yes (Other)
  Sender: ALEXION PHARMACEUTICALS
  Company Number: RO-AstraZeneca-CH-00698980A

PATIENT
  Age: 46 Year
  Sex: Female

DRUGS (1)
  1. SOLIRIS [Suspect]
     Active Substance: ECULIZUMAB
     Indication: Paroxysmal nocturnal haemoglobinuria
     Dosage: UNK
     Route: 041
     Dates: start: 201911

REACTIONS (20)
  - Neutropenia [Recovered/Resolved]
  - Ascites [Unknown]
  - Myelodysplastic syndrome [Unknown]
  - Sepsis [Unknown]
  - Intravascular haemolysis [Unknown]
  - Blood loss anaemia [Unknown]
  - Hepatic cirrhosis [Unknown]
  - Pyelonephritis [Unknown]
  - Pancytopenia [Unknown]
  - Platelet count decreased [Recovered/Resolved]
  - Epistaxis [Unknown]
  - Hypercoagulation [Unknown]
  - Hypersplenism [Recovered/Resolved]
  - Abdominal pain [Unknown]
  - Dyspnoea [Unknown]
  - Anaemia [Unknown]
  - Varices oesophageal [Unknown]
  - Iron overload [Unknown]
  - Blood urea increased [Unknown]
  - Blood albumin decreased [Unknown]

NARRATIVE: CASE EVENT DATE: 20200101
